FAERS Safety Report 6176830-5 (Version None)
Quarter: 2009Q2

REPORT INFORMATION
  Report Type: 
  Country: None (occurrence: None)
  Receive Date: 20090501
  Receipt Date: 20090422
  Transmission Date: 20091009
  Serious: Yes (Hospitalization, Other)
  Sender: FDA-Public Use
  Company Number: PHHY2009BR15513

PATIENT
  Sex: Male

DRUGS (1)
  1. STALEVO 100 [Suspect]
     Dosage: FOUR TIMES PER DAY

REACTIONS (4)
  - DYSPHAGIA [None]
  - GASTROINTESTINAL TUBE INSERTION [None]
  - GASTROSTOMY [None]
  - PNEUMONIA [None]
